FAERS Safety Report 5640153-0 (Version None)
Quarter: 2008Q1

REPORT INFORMATION
  Report Type: 
  Country: None (occurrence: None)
  Receive Date: 20080226
  Receipt Date: 20080226
  Transmission Date: 20080703
  Serious: Yes (Life-Threatening, Hospitalization)
  Sender: FDA-Public Use
  Company Number: None

PATIENT
  Age: 66 Year
  Sex: Female
  Weight: 85.7298 kg

DRUGS (2)
  1. CELEBREX [Suspect]
     Indication: OSTEOARTHRITIS
     Dosage: 200MG  DAILY  PO
     Route: 048
     Dates: start: 20040401, end: 20050401
  2. CELEBREX [Suspect]
     Indication: OSTEOARTHRITIS
     Dosage: 200MG  DAILY  PO
     Route: 048
     Dates: start: 20080115, end: 20080210

REACTIONS (5)
  - ANAPHYLACTIC REACTION [None]
  - CHEST PAIN [None]
  - ELECTROCARDIOGRAM ST SEGMENT DEPRESSION [None]
  - HYPERSENSITIVITY [None]
  - HYPOTENSION [None]
